FAERS Safety Report 6699427-7 (Version None)
Quarter: 2010Q2

REPORT INFORMATION
  Report Type: 
  Country: None (occurrence: None)
  Receive Date: 20100426
  Receipt Date: 20100415
  Transmission Date: 20101027
  Serious: Yes (Hospitalization)
  Sender: FDA-Public Use
  Company Number: UTC-000997

PATIENT
  Age: 68 Year
  Sex: Female
  Weight: 81.8 kg

DRUGS (13)
  1. REMODULIN [Suspect]
     Indication: PULMONARY ARTERIAL HYPERTENSION
     Dosage: 152.64 UG/KG (0.106 UG/KG, 1 IN 1 MIN), SUBCUTANEOUS
     Route: 058
     Dates: start: 20010101
  2. FOSAMAX [Concomitant]
  3. SINGULAIR [Concomitant]
  4. ALDACTONE [Concomitant]
  5. CELEBREX [Concomitant]
  6. LASIX [Concomitant]
  7. PREDNISONE TAB [Concomitant]
  8. VIAGRA [Concomitant]
  9. POTASSIUM CHLORIDE [Concomitant]
  10. CALCARB (CALCIUM CARBONATE) [Concomitant]
  11. METHIMAZOLE [Concomitant]
  12. FLECAINIDE ACETATE [Concomitant]
  13. PRILOSEC (OMEPRAZOLE) [Concomitant]

REACTIONS (1)
  - ATRIAL FLUTTER [None]
